FAERS Safety Report 26000486 (Version 1)
Quarter: 2025Q4

REPORT INFORMATION
  Report Type: Spontaneous
  Country: US (occurrence: US)
  Receive Date: 20251105
  Receipt Date: 20251105
  Transmission Date: 20260118
  Serious: No
  Sender: ANI
  Company Number: US-ANIPHARMA-2025-US-040322

PATIENT
  Age: 42 Year
  Sex: Female
  Weight: 77.11 kg

DRUGS (6)
  1. ATORVASTATIN CALCIUM [Concomitant]
     Active Substance: ATORVASTATIN CALCIUM
  2. VITAMIN D3 [Concomitant]
     Active Substance: CHOLECALCIFEROL
  3. FERROUS SULFATE [Concomitant]
     Active Substance: FERROUS SULFATE
  4. LEVOTHYROXINE SODIUM [Concomitant]
     Active Substance: LEVOTHYROXINE SODIUM
  5. LOSARTAN POTASSIUM [Concomitant]
     Active Substance: LOSARTAN POTASSIUM
  6. CORTICOTROPIN [Suspect]
     Active Substance: CORTICOTROPIN
     Indication: Nephrotic syndrome
     Dosage: 80IU TWICE WEEKLY
     Route: 058
     Dates: start: 202505

REACTIONS (2)
  - Abnormal weight gain [Not Recovered/Not Resolved]
  - Menstrual disorder [Unknown]
